FAERS Safety Report 6378721-3 (Version None)
Quarter: 2009Q3

REPORT INFORMATION
  Report Type: 
  Country: None (occurrence: None)
  Receive Date: 20090923
  Receipt Date: 20090918
  Transmission Date: 20100115
  Serious: Yes (Death)
  Sender: FDA-Public Use
  Company Number: SPV1-2009-01858

PATIENT
  Age: 73 Year
  Sex: Female

DRUGS (1)
  1. FOSRENOL [Suspect]
     Dosage: 1000 MG, ORAL
     Route: 048

REACTIONS (1)
  - CARDIAC ARREST [None]
